FAERS Safety Report 9208002 (Version 1)
Quarter: 2013Q2

REPORT INFORMATION
  Report Type: Spontaneous
  Country: JP (occurrence: JP)
  Receive Date: 20130403
  Receipt Date: 20130408
  Transmission Date: 20140414
  Serious: Yes (Other)
  Sender: FDA-Public Use
  Company Number: JP-ASTRAZENECA-2013SE20940

PATIENT
  Age: 70 Year
  Sex: Male

DRUGS (2)
  1. XYLOCAINE [Suspect]
     Dosage: 3-6 MILLILITRES/HOUR
     Route: 042
  2. PANALDINE [Concomitant]
     Dosage: DOSE UNKNOWN
     Route: 065

REACTIONS (2)
  - Toxicity to various agents [Recovered/Resolved]
  - Renal impairment [Unknown]
